FAERS Safety Report 12328718 (Version 1)
Quarter: 2016Q2

REPORT INFORMATION
  Report Type: Spontaneous
  Country: US (occurrence: US)
  Receive Date: 20160503
  Receipt Date: 20160503
  Transmission Date: 20160815
  Serious: No
  Sender: FDA-Public Use
  Company Number: US-BEH-2015050360

PATIENT
  Age: 50 Year
  Sex: Female
  Weight: 84 kg

DRUGS (24)
  1. FLUCONAZOLE. [Concomitant]
     Active Substance: FLUCONAZOLE
  2. OXYGEN. [Concomitant]
     Active Substance: OXYGEN
  3. AMITRIPTYLINE [Concomitant]
     Active Substance: AMITRIPTYLINE
  4. BUTAL-APAP [Concomitant]
  5. FLEXERIL [Concomitant]
     Active Substance: CYCLOBENZAPRINE HYDROCHLORIDE
  6. ATIVAN [Concomitant]
     Active Substance: LORAZEPAM
  7. VITAMIN B6 [Concomitant]
     Active Substance: PYRIDOXINE HYDROCHLORIDE
  8. BACTRIM DS [Concomitant]
     Active Substance: SULFAMETHOXAZOLE\TRIMETHOPRIM
  9. LASIX [Concomitant]
     Active Substance: FUROSEMIDE
  10. HIZENTRA [Suspect]
     Active Substance: HUMAN IMMUNOGLOBULIN G
     Indication: IMMUNODEFICIENCY COMMON VARIABLE
     Dosage: 1 GM 5 ML VIAL
     Route: 058
     Dates: start: 20150408, end: 20150409
  11. EPIPEN [Concomitant]
     Active Substance: EPINEPHRINE
  12. CENTRUM MVI [Concomitant]
  13. ZOFRAN [Concomitant]
     Active Substance: ONDANSETRON HYDROCHLORIDE
  14. LANSOPRAZOLE. [Concomitant]
     Active Substance: LANSOPRAZOLE
  15. FERROUS GLUCONATE [Concomitant]
     Active Substance: FERROUS GLUCONATE
  16. OXYCODONE [Concomitant]
     Active Substance: OXYCODONE
  17. ACETAMINOPHEN. [Concomitant]
     Active Substance: ACETAMINOPHEN
  18. LMX [Concomitant]
     Active Substance: LIDOCAINE
  19. STOOL SOFTENER [Concomitant]
     Active Substance: DOCUSATE CALCIUM
  20. DIPHENHYDRAMINE. [Concomitant]
     Active Substance: DIPHENHYDRAMINE
  21. TYLENOL [Concomitant]
     Active Substance: ACETAMINOPHEN
  22. ATENOLOL. [Concomitant]
     Active Substance: ATENOLOL
  23. FOLIC ACID. [Concomitant]
     Active Substance: FOLIC ACID
  24. ESTROGEN-METHYLTESTOSTERONE [Concomitant]

REACTIONS (3)
  - Headache [Recovered/Resolved]
  - Incorrect route of drug administration [Recovered/Resolved]
  - Administration site swelling [Recovered/Resolved]

NARRATIVE: CASE EVENT DATE: 20150408
